FAERS Safety Report 6977413-7 (Version None)
Quarter: 2010Q3

REPORT INFORMATION
  Report Type: 
  Country: None (occurrence: None)
  Receive Date: 20100910
  Receipt Date: 20100902
  Transmission Date: 20110219
  Serious: Yes (Hospitalization, Other)
  Sender: FDA-Public Use
  Company Number: US-ABBOTT-10P-163-0668215-00

PATIENT
  Age: 61 Year
  Sex: Female
  Weight: 124.4 kg

DRUGS (12)
  1. HUMIRA [Suspect]
     Indication: CROHN'S DISEASE
     Dates: start: 20080901, end: 20100715
  2. TRICOR [Concomitant]
     Indication: BLOOD CHOLESTEROL
  3. ACIPHEX [Concomitant]
     Indication: REFLUX OESOPHAGITIS
  4. WELLBUTRIN XL [Concomitant]
     Indication: PRODUCT USED FOR UNKNOWN INDICATION
  5. ZANAFLEX [Concomitant]
     Indication: MUSCLE SPASMS
  6. RESTORIL [Concomitant]
     Indication: INSOMNIA
     Dosage: AT BEDTIME
  7. LORA TAB [Concomitant]
     Indication: PAIN
     Dosage: 10/500 FOUR TIMES A DAY
  8. CITRACAL [Concomitant]
     Indication: PRODUCT USED FOR UNKNOWN INDICATION
  9. LIDODREM PATCHES [Concomitant]
     Indication: PAIN
  10. LEVOTHYROXINE SODIUM [Concomitant]
     Indication: PRODUCT USED FOR UNKNOWN INDICATION
  11. PENTASA [Concomitant]
     Indication: PRODUCT USED FOR UNKNOWN INDICATION
  12. 6 M PURENOTHOL [Concomitant]
     Indication: PRODUCT USED FOR UNKNOWN INDICATION

REACTIONS (5)
  - ARTHRALGIA [None]
  - BONE PAIN [None]
  - HERNIA [None]
  - INTESTINAL OBSTRUCTION [None]
  - WOUND INFECTION STAPHYLOCOCCAL [None]
